FAERS Safety Report 7132103-5 (Version None)
Quarter: 2010Q4

REPORT INFORMATION
  Report Type: 
  Country: None (occurrence: None)
  Receive Date: 20101124
  Receipt Date: 20101124
  Transmission Date: 20110411
  Serious: Yes (Death, Life-Threatening)
  Sender: FDA-Public Use
  Company Number: None

PATIENT
  Age: 33 Day
  Sex: Male
  Weight: 3.4 kg

DRUGS (9)
  1. FLUCONAZOLE [Suspect]
     Indication: ANTIFUNGAL PROPHYLAXIS
     Dosage: 25 MG/KG IV WEEKLY
     Route: 042
     Dates: start: 20101109
  2. FLUCONAZOLE [Suspect]
     Indication: ANTIFUNGAL PROPHYLAXIS
     Dosage: 25 MG/KG IV WEEKLY
     Route: 042
     Dates: start: 20101116
  3. PIPERACILLIN AND TAZOBACTAM [Concomitant]
  4. CIDOFAVIR [Concomitant]
  5. NICARDIPINE HYDROCHLORIDE [Concomitant]
  6. HEPARIN [Concomitant]
  7. MIDAZOLAM HCL [Concomitant]
  8. HYDROCORTISONE [Concomitant]
  9. FENTANYL [Concomitant]

REACTIONS (3)
  - BRAIN MIDLINE SHIFT [None]
  - CEREBRAL HAEMORRHAGE [None]
  - SUBARACHNOID HAEMORRHAGE [None]
